FAERS Safety Report 5444331-5 (Version None)
Quarter: 2007Q3

REPORT INFORMATION
  Report Type: 
  Country: None (occurrence: None)
  Receive Date: 20070831
  Receipt Date: 20070813
  Transmission Date: 20080115
  Serious: Yes (Death, Hospitalization)
  Sender: FDA-Public Use
  Company Number: 2007US001843

PATIENT
  Sex: Female

DRUGS (5)
  1. AMBISOME [Suspect]
     Indication: PROPHYLAXIS
     Dosage: 120 MG, UID/QD, IV DRIP
     Route: 041
  2. TEICOPLANIN [Concomitant]
  3. AZITHROMYCIN [Concomitant]
  4. CIPROFLOXACIN [Concomitant]
  5. NITRIC OXIDE [Concomitant]

REACTIONS (1)
  - PULMONARY FIBROSIS [None]
